FAERS Safety Report 11087573 (Version 1)
Quarter: 2015Q2

REPORT INFORMATION
  Report Type: Spontaneous
  Country: AU (occurrence: AU)
  Receive Date: 20150504
  Receipt Date: 20150504
  Transmission Date: 20150821
  Serious: Yes (Other)
  Sender: FDA-Public Use
  Company Number: AU-WATSON-2015-08954

PATIENT
  Age: 16 Year
  Sex: Male
  Weight: 114 kg

DRUGS (6)
  1. FLUOXETINE [Interacting]
     Active Substance: FLUOXETINE\FLUOXETINE HYDROCHLORIDE
     Indication: DEPRESSED MOOD
     Dosage: 20 MG, QAM
     Route: 065
  2. ATORVASTATIN (UNKNOWN) [Interacting]
     Active Substance: ATORVASTATIN
     Dosage: 10 MG, DAILY
     Route: 065
  3. METFORMIN (UNKNOWN) [Suspect]
     Active Substance: METFORMIN HYDROCHLORIDE
     Indication: OFF LABEL USE
     Dosage: TITRED OVER 4 WEEKS UP TO 1000 MG, BID,
     Route: 065
  4. CHOLECALCIFEROL [Concomitant]
     Active Substance: CHOLECALCIFEROL
     Indication: VITAMIN D DEFICIENCY
     Dosage: 1000 MG, DAILY
     Route: 065
  5. ATORVASTATIN (UNKNOWN) [Interacting]
     Active Substance: ATORVASTATIN
     Indication: METABOLIC SYNDROME
     Dosage: 5 MG, QAM
     Route: 065
  6. CHOLECALCIFEROL [Concomitant]
     Active Substance: CHOLECALCIFEROL
     Dosage: 4000 MG, DAILY
     Route: 065

REACTIONS (3)
  - Immune-mediated necrotising myopathy [Not Recovered/Not Resolved]
  - Drug interaction [Unknown]
  - Product use issue [Unknown]
